FAERS Safety Report 14890265 (Version 4)
Quarter: 2018Q4

REPORT INFORMATION
  Report Type: Spontaneous
  Country: US (occurrence: US)
  Receive Date: 20180514
  Receipt Date: 20181227
  Transmission Date: 20190204
  Serious: No
  Sender: FDA-Public Use
  Company Number: US-PFIZER INC-2018194454

PATIENT
  Age: 13 Year
  Sex: Male
  Weight: 40.37 kg

DRUGS (2)
  1. GENOTROPIN [Suspect]
     Active Substance: SOMATROPIN
     Dosage: UNK
  2. GENOTROPIN [Suspect]
     Active Substance: SOMATROPIN
     Indication: HORMONE THERAPY
     Dosage: 1.8 MG, 1X/DAY (NIGHTLY)
     Dates: start: 2016

REACTIONS (4)
  - Headache [Not Recovered/Not Resolved]
  - Product dose omission [Unknown]
  - Device issue [Unknown]
  - Back pain [Unknown]
